FAERS Safety Report 21395123 (Version 1)
Quarter: 2022Q3

REPORT INFORMATION
  Report Type: Other
  Country: GB (occurrence: GB)
  Receive Date: 20220930
  Receipt Date: 20220930
  Transmission Date: 20221026
  Serious: Yes (Other)
  Sender: FDA-Public Use
  Company Number: GB-MACLEODS PHARMA EU LTD-MAC2022037436

PATIENT

DRUGS (1)
  1. EMTRICITABINE\TENOFOVIR DISOPROXIL [Suspect]
     Active Substance: EMTRICITABINE\TENOFOVIR DISOPROXIL
     Indication: Product used for unknown indication
     Dosage: UNK (PREP DAILY DOSE)
     Route: 065

REACTIONS (2)
  - Body fat disorder [Not Recovered/Not Resolved]
  - Lipodystrophy acquired [Unknown]

NARRATIVE: CASE EVENT DATE: 20220801
